FAERS Safety Report 10519796 (Version 3)
Quarter: 2014Q4

REPORT INFORMATION
  Report Type: Report from Study
  Country: US (occurrence: US)
  Receive Date: 20141015
  Receipt Date: 20141219
  Transmission Date: 20150528
  Serious: Yes (Hospitalization)
  Sender: FDA-Public Use
  Company Number: US-BRISTOL-MYERS SQUIBB COMPANY-21480017

PATIENT
  Age: 43 Year
  Sex: Male
  Weight: 110.9 kg

DRUGS (1)
  1. IPILIMUMAB [Suspect]
     Active Substance: IPILIMUMAB
     Indication: MALIGNANT MELANOMA
     Dosage: IT:OVER 90MINS Q3 WEEKSX4 DOSES  MT:OVER 90MINS WEEKS24,36,48,60  TOTAL DOSE ON 18SEP14:1109 MG
     Route: 042
     Dates: start: 20140808

REACTIONS (3)
  - Memory impairment [Recovering/Resolving]
  - Neurogenic bladder [Recovering/Resolving]
  - Encephalopathy [Recovering/Resolving]

NARRATIVE: CASE EVENT DATE: 2014
